FAERS Safety Report 9668712 (Version 2)
Quarter: 2013Q4

REPORT INFORMATION
  Report Type: Spontaneous
  Country: CA (occurrence: CA)
  Receive Date: 20131105
  Receipt Date: 20131105
  Transmission Date: 20140711
  Serious: Yes (Other)
  Sender: FDA-Public Use
  Company Number: CA-BAYER-2013-118196

PATIENT
  Age: 43 Year
  Sex: Female
  Weight: 80.73 kg

DRUGS (1)
  1. MIRENA [Suspect]
     Indication: CONTRACEPTION
     Dosage: 20 MCG/24HR, CONT
     Route: 015
     Dates: start: 20100303, end: 20130905

REACTIONS (5)
  - Procedural pain [None]
  - Vaginal haemorrhage [Not Recovered/Not Resolved]
  - Genital haemorrhage [None]
  - Necrosis [None]
  - Endometritis [None]
